FAERS Safety Report 23290191 (Version 1)
Quarter: 2023Q4

REPORT INFORMATION
  Report Type: Spontaneous
  Country: US (occurrence: US)
  Receive Date: 20231213
  Receipt Date: 20231213
  Transmission Date: 20240110
  Serious: Yes (Other)
  Sender: FDA-Public Use
  Company Number: US-TEVA-VS-3134813

PATIENT
  Age: 24 Year

DRUGS (1)
  1. MEGESTROL ACETATE [Suspect]
     Active Substance: MEGESTROL ACETATE
     Indication: Muscle building therapy
     Dosage: SCHEDULED TO BE ADMINISTERED FOR 2 MONTHS, STRENGTH 625MG PER 5ML
     Route: 065

REACTIONS (3)
  - Hypothalamo-pituitary disorder [Unknown]
  - Intentional product misuse [Unknown]
  - Treatment noncompliance [Unknown]
